FAERS Safety Report 24724332 (Version 1)
Quarter: 2024Q4

REPORT INFORMATION
  Report Type: Spontaneous
  Country: US (occurrence: US)
  Receive Date: 20241212
  Receipt Date: 20241212
  Transmission Date: 20250114
  Serious: Yes (Other)
  Sender: ABBVIE
  Company Number: US-ABBVIE-6035522

PATIENT
  Age: 87 Year
  Sex: Female

DRUGS (3)
  1. SYNTHROID [Suspect]
     Active Substance: LEVOTHYROXINE SODIUM
     Indication: Product used for unknown indication
     Route: 048
  2. VALSARTAN [Suspect]
     Active Substance: VALSARTAN
     Indication: Product used for unknown indication
     Route: 065
  3. OFEV [Suspect]
     Active Substance: NINTEDANIB
     Indication: Interstitial lung disease
     Route: 048
     Dates: start: 20240606

REACTIONS (13)
  - Knee arthroplasty [Not Recovered/Not Resolved]
  - Blood glucose increased [Unknown]
  - Diarrhoea [Not Recovered/Not Resolved]
  - Dyspnoea [Unknown]
  - Procedural pain [Not Recovered/Not Resolved]
  - Sputum increased [Not Recovered/Not Resolved]
  - Illness [Unknown]
  - Fatigue [Unknown]
  - Productive cough [Not Recovered/Not Resolved]
  - Wheezing [Unknown]
  - Back pain [Not Recovered/Not Resolved]
  - Weight decreased [Unknown]
  - Urinary tract infection [Unknown]

NARRATIVE: CASE EVENT DATE: 20240601
